FAERS Safety Report 13776529 (Version 1)
Quarter: 2017Q3

REPORT INFORMATION
  Report Type: Report from Study
  Country: US (occurrence: US)
  Receive Date: 20170721
  Receipt Date: 20170721
  Transmission Date: 20171127
  Serious: Yes (Hospitalization)
  Sender: FDA-Public Use
  Company Number: US-TAIHO ONCOLOGY INC-EU-2017-01003

PATIENT
  Age: 83 Year
  Sex: Male
  Weight: 78.09 kg

DRUGS (2)
  1. LONSURF [Suspect]
     Active Substance: TIPIRACIL HYDROCHLORIDE\TRIFLURIDINE
     Indication: COLON CANCER STAGE III
     Dosage: DOSAGE REGIMEN UNKNOWN
     Route: 048
     Dates: end: 2017
  2. LONSURF [Suspect]
     Active Substance: TIPIRACIL HYDROCHLORIDE\TRIFLURIDINE
     Indication: COLON CANCER STAGE III
     Route: 048
     Dates: start: 2017, end: 20170622

REACTIONS (5)
  - Dizziness [Unknown]
  - Neuropathy peripheral [Unknown]
  - White blood cell count decreased [Unknown]
  - Pancytopenia [Unknown]
  - Syncope [Unknown]

NARRATIVE: CASE EVENT DATE: 20170615
